FAERS Safety Report 21864967 (Version 1)
Quarter: 2023Q1

REPORT INFORMATION
  Report Type: Other
  Country: FR (occurrence: FR)
  Receive Date: 20230116
  Receipt Date: 20230116
  Transmission Date: 20230417
  Serious: Yes (Hospitalization)
  Sender: FDA-Public Use
  Company Number: None

PATIENT

DRUGS (6)
  1. RAMIPRIL [Suspect]
     Active Substance: RAMIPRIL
     Indication: Hypertension
     Dosage: 1.25 MILLIGRAM, QD
     Route: 048
  2. NEBIVOLOL [Suspect]
     Active Substance: NEBIVOLOL
     Indication: Cardiac failure
     Dosage: 2.5 MILLIGRAM, QD
     Route: 048
  3. PANTOPRAZOLE [Suspect]
     Active Substance: PANTOPRAZOLE
     Indication: Product used for unknown indication
     Dosage: 20 MILLIGRAM, QD
     Route: 048
  4. SPIRONOLACTONE [Suspect]
     Active Substance: SPIRONOLACTONE
     Indication: Hypertension
     Dosage: 12.5 MILLIGRAM, QD
     Route: 048
  5. APIXABAN [Suspect]
     Active Substance: APIXABAN
     Indication: Atrial fibrillation
     Dosage: 5 MILLIGRAM, QD
     Route: 048
  6. CORDARONE [Suspect]
     Active Substance: AMIODARONE HYDROCHLORIDE
     Indication: Atrial fibrillation
     Dosage: 100 MILLIGRAM, QD
     Route: 048
     Dates: start: 2021, end: 20221201

REACTIONS (1)
  - Interstitial lung disease [Recovering/Resolving]

NARRATIVE: CASE EVENT DATE: 20221108
